FAERS Safety Report 5610865-3 (Version None)
Quarter: 2008Q1

REPORT INFORMATION
  Report Type: 
  Country: None (occurrence: None)
  Receive Date: 20080201
  Receipt Date: 20080123
  Transmission Date: 20080703
  Serious: Yes (Other)
  Sender: FDA-Public Use
  Company Number: GB-WYE-H02307208

PATIENT
  Age: 79 Year
  Sex: Male

DRUGS (4)
  1. TIGECYCLINE [Suspect]
     Indication: PERITONITIS
     Dosage: UNKNOWN
     Route: 065
  2. LEVOFLOXACIN [Suspect]
     Indication: PERITONITIS
  3. VANCOMYCIN [Suspect]
     Indication: PERITONITIS
  4. CEFTRIAXONE [Suspect]
     Indication: PERITONITIS

REACTIONS (1)
  - CLOSTRIDIAL INFECTION [None]
